FAERS Safety Report 9475337 (Version 2)
Quarter: 2014Q2

REPORT INFORMATION
  Report Type: Spontaneous
  Country: US (occurrence: US)
  Receive Date: 20130826
  Receipt Date: 20140512
  Transmission Date: 20141212
  Serious: No
  Sender: FDA-Public Use
  Company Number: US-BIOGENIDEC-2013BI076446

PATIENT
  Age: 48 Year
  Sex: Female

DRUGS (2)
  1. TYSABRI [Suspect]
     Indication: MULTIPLE SCLEROSIS
     Route: 042
     Dates: start: 20130328
  2. FLOMAX [Concomitant]
     Indication: URINARY INCONTINENCE
     Dates: start: 2012

REACTIONS (11)
  - Muscle tightness [Recovered/Resolved]
  - Fall [Recovered/Resolved]
  - Arthropathy [Recovered/Resolved]
  - Back pain [Recovered/Resolved]
  - Dysplastic naevus [Not Recovered/Not Resolved]
  - Joint stiffness [Recovered/Resolved]
  - Muscular weakness [Not Recovered/Not Resolved]
  - Musculoskeletal stiffness [Recovered/Resolved]
  - Arthralgia [Recovered/Resolved]
  - Hot flush [Recovered/Resolved]
  - Urinary tract infection [Recovered/Resolved]
